FAERS Safety Report 6135352-8 (Version None)
Quarter: 2009Q1

REPORT INFORMATION
  Report Type: 
  Country: None (occurrence: None)
  Receive Date: 20090327
  Receipt Date: 20090316
  Transmission Date: 20090719
  Serious: Yes (Hospitalization)
  Sender: FDA-Public Use
  Company Number: TH-PFIZER INC-2009184863

PATIENT

DRUGS (6)
  1. PIROXICAM [Suspect]
  2. DICLOFENAC SODIUM [Suspect]
  3. PREDNISOLONE AND PREDNISOLONE STEAGLATE [Suspect]
  4. ACETYLSALICYLIC ACID [Suspect]
  5. IBUPROFEN [Suspect]
  6. DEXAMETHASONE [Suspect]

REACTIONS (2)
  - STEVENS-JOHNSON SYNDROME [None]
  - TOXIC EPIDERMAL NECROLYSIS [None]
